FAERS Safety Report 13588242 (Version 2)
Quarter: 2017Q2

REPORT INFORMATION
  Report Type: Report from Study
  Country: MA (occurrence: MA)
  Receive Date: 20170528
  Receipt Date: 20170622
  Transmission Date: 20170830
  Serious: Yes (Death)
  Sender: FDA-Public Use
  Company Number: MA-AMGEN-MARNI2017080180

PATIENT
  Age: 59 Year
  Sex: Male
  Weight: 76 kg

DRUGS (2)
  1. IVABRADINE [Suspect]
     Active Substance: IVABRADINE
     Indication: CORONARY ARTERY DISEASE
     Dosage: UNK
     Route: 065
  2. IVABRADINE [Suspect]
     Active Substance: IVABRADINE
     Indication: CARDIAC FAILURE

REACTIONS (2)
  - Cardiac failure [Fatal]
  - Coronary artery disease [Fatal]

NARRATIVE: CASE EVENT DATE: 2017
